FAERS Safety Report 5897837-9 (Version None)
Quarter: 2008Q3

REPORT INFORMATION
  Report Type: 
  Country: None (occurrence: None)
  Receive Date: 20080923
  Receipt Date: 20080908
  Transmission Date: 20090109
  Serious: Yes (Other)
  Sender: FDA-Public Use
  Company Number: GB-1167267

PATIENT
  Age: 25 Year
  Sex: Male

DRUGS (4)
  1. TIMOLOL MALEATE [Suspect]
     Dosage: OPHTHALMIC
     Route: 047
  2. PILOCARPINE [Suspect]
     Dosage: OPHTHALMIC
     Route: 047
  3. LATANOPROST [Concomitant]
  4. DORZOLAMIDE (DORZOLAMIDE) [Concomitant]

REACTIONS (4)
  - HYPHAEMA [None]
  - INTRAOCULAR PRESSURE INCREASED [None]
  - UVEITIS [None]
  - VISUAL ACUITY REDUCED [None]
